FAERS Safety Report 16468430 (Version 1)
Quarter: 2019Q2

REPORT INFORMATION
  Report Type: Report from Study
  Country: US (occurrence: US)
  Receive Date: 20190624
  Receipt Date: 20190624
  Transmission Date: 20190711
  Serious: No
  Sender: FDA-Public Use
  Company Number: US-BEH-2019102664

PATIENT
  Age: 45 Year
  Sex: Female
  Weight: 86.17 kg

DRUGS (3)
  1. HAEGARDA [Suspect]
     Active Substance: HUMAN C1-ESTERASE INHIBITOR
     Dosage: 5000 IU, TOT
     Route: 058
     Dates: start: 20190520, end: 20190520
  2. HAEGARDA [Suspect]
     Active Substance: HUMAN C1-ESTERASE INHIBITOR
     Indication: PROPHYLAXIS
     Dosage: 5000 IU, TOT
     Route: 058
     Dates: start: 20190516, end: 20190516
  3. HAEGARDA [Suspect]
     Active Substance: HUMAN C1-ESTERASE INHIBITOR
     Indication: HEREDITARY ANGIOEDEMA
     Dosage: 5000 IU, BIW (EVERY 3-4 DAYS)
     Route: 058
     Dates: start: 20190513

REACTIONS (8)
  - Erythema [Recovering/Resolving]
  - Wheezing [Recovering/Resolving]
  - Pruritus [Recovering/Resolving]
  - Swelling [Recovering/Resolving]
  - Administration site erythema [Recovering/Resolving]
  - Administration site erythema [Recovering/Resolving]
  - Administration site swelling [Recovering/Resolving]
  - Administration site pruritus [Recovering/Resolving]

NARRATIVE: CASE EVENT DATE: 20190513
